FAERS Safety Report 19499823 (Version 1)
Quarter: 2021Q3

REPORT INFORMATION
  Report Type: Spontaneous
  Country: DE (occurrence: DE)
  Receive Date: 20210707
  Receipt Date: 20210707
  Transmission Date: 20211014
  Serious: Yes (Hospitalization)
  Sender: FDA-Public Use
  Company Number: DE-TEVA-2021-DE-1929464

PATIENT
  Age: 50 Year
  Sex: Female
  Weight: 60 kg

DRUGS (8)
  1. PANTOPRAZOL [Concomitant]
     Active Substance: PANTOPRAZOLE SODIUM
     Dosage: 80 MILLIGRAM DAILY;  1?0?1?0
  2. MARCUMAR [Suspect]
     Active Substance: PHENPROCOUMON
     Dosage: ACCORDING TO INR
  3. ETORICOXIB. [Concomitant]
     Active Substance: ETORICOXIB
     Dosage: 60 MILLIGRAM DAILY;  0?1?0?0
  4. NALOXONE W/OXYCODONE [Concomitant]
     Active Substance: NALOXONE HYDROCHLORIDE\OXYCODONE HYDROCHLORIDE
     Dosage: 2 DOSAGE FORMS DAILY; 10|20 MG, 1?0?1?0
  5. FERRO SANOL 100MG (FE2+) [Concomitant]
     Active Substance: FERROUS GLYCINE SULFATE
     Dosage: 100 MILLIGRAM DAILY;  1?0?0?0
  6. MYCOPHENOLSAURE [Concomitant]
     Active Substance: MYCOPHENOLIC ACID
     Dosage: 4 DOSAGE FORMS DAILY; 360 MG, 0?2?0?2
  7. SEVREDOL 10MG [Concomitant]
     Dosage: 2 DOSAGE FORMS DAILY; 10 MG, 0?0?2?0
  8. PREDNISOLON [Suspect]
     Active Substance: PREDNISOLONE
     Dosage: 10 MILLIGRAM DAILY; 1?0?0?0

REACTIONS (2)
  - General physical health deterioration [Unknown]
  - Anaemia [Unknown]
